FAERS Safety Report 9064934 (Version 1)
Quarter: 2013Q1

REPORT INFORMATION
  Report Type: Report from Study
  Country: US (occurrence: US)
  Receive Date: 20130131
  Receipt Date: 20130131
  Transmission Date: 20140127
  Serious: No
  Sender: FDA-Public Use
  Company Number: US-ABBOTT-12P-163-1015472-00

PATIENT
  Age: 34 Year
  Sex: Female

DRUGS (8)
  1. HUMIRA [Suspect]
     Indication: RHEUMATOID ARTHRITIS
     Dates: start: 20120903
  2. METHOTREXATE [Concomitant]
     Indication: RHEUMATOID ARTHRITIS
     Dosage: 7.5MG WEEKLY
  3. BYSTOLIC [Concomitant]
     Indication: HYPERTENSION
     Dosage: 2.5MG DAILY
  4. ASACOL [Concomitant]
     Indication: PRODUCT USED FOR UNKNOWN INDICATION
  5. ASMANEX [Concomitant]
     Dosage: INHALER 220MCG DAILY
  6. FLEXERIL [Concomitant]
     Indication: RHEUMATOID ARTHRITIS
     Dosage: 5MG DAILY
  7. HYDROCORTISONE [Concomitant]
     Indication: ECZEMA
     Dosage: 1.25MG AS NEEDED
  8. ZYRTEC [Concomitant]
     Indication: HYPERSENSITIVITY

REACTIONS (2)
  - Urticaria [Recovering/Resolving]
  - Injection site reaction [Unknown]
